FAERS Safety Report 10182906 (Version 2)
Quarter: 2014Q2

REPORT INFORMATION
  Report Type: Spontaneous
  Country: BE (occurrence: BE)
  Receive Date: 20140520
  Receipt Date: 20140604
  Transmission Date: 20141212
  Serious: Yes (Death)
  Sender: FDA-Public Use
  Company Number: BE-SA-2014SA060414

PATIENT
  Age: 70 Year
  Sex: Male

DRUGS (2)
  1. FASTURTEC [Suspect]
     Indication: LYMPHOMA
     Route: 065
     Dates: start: 2014
  2. RITUXIMAB [Concomitant]
     Indication: LYMPHOMA

REACTIONS (2)
  - Death [Fatal]
  - Thrombocytopenia [Unknown]
